FAERS Safety Report 14969654 (Version 1)
Quarter: 2018Q2

REPORT INFORMATION
  Report Type: Spontaneous
  Country: US (occurrence: US)
  Receive Date: 20180604
  Receipt Date: 20180604
  Transmission Date: 20180711
  Serious: No
  Sender: FDA-Public Use
  Company Number: US-OTSUKA-2017_024555

PATIENT
  Age: 78 Year
  Sex: Female
  Weight: 40.82 kg

DRUGS (1)
  1. SAMSCA [Suspect]
     Active Substance: TOLVAPTAN
     Indication: BLOOD SODIUM DECREASED
     Dosage: 7.5 MG, QD
     Route: 048
     Dates: start: 2017, end: 20171103

REACTIONS (10)
  - Joint swelling [Unknown]
  - Anxiety [Unknown]
  - Condition aggravated [Unknown]
  - Rash [Recovering/Resolving]
  - Wrong technique in product usage process [Unknown]
  - Wrong schedule [Unknown]
  - Swelling [Recovering/Resolving]
  - Peripheral swelling [Unknown]
  - Incorrect drug administration duration [Unknown]
  - Underdose [Unknown]
